FAERS Safety Report 23929560 (Version 1)
Quarter: 2024Q2

REPORT INFORMATION
  Report Type: Spontaneous
  Country: US (occurrence: US)
  Receive Date: 20240601
  Receipt Date: 20240601
  Transmission Date: 20240716
  Serious: No
  Sender: FDA-Public Use
  Company Number: US-RADIUS HEALTH INC.-2024US002173

PATIENT
  Sex: Female

DRUGS (1)
  1. TYMLOS [Suspect]
     Active Substance: ABALOPARATIDE
     Indication: Product used for unknown indication
     Dosage: 80 MICROGRAM, QD
     Route: 058

REACTIONS (8)
  - Dyspepsia [Unknown]
  - Vision blurred [Unknown]
  - Photopsia [Unknown]
  - Myalgia [Unknown]
  - Dizziness [Unknown]
  - Pain [Unknown]
  - Heart rate increased [Unknown]
  - Product dose omission issue [Unknown]
